FAERS Safety Report 5145901-4 (Version None)
Quarter: 2006Q4

REPORT INFORMATION
  Report Type: 
  Country: None (occurrence: None)
  Receive Date: 20061106
  Receipt Date: 20061106
  Transmission Date: 20070319
  Serious: No
  Sender: FDA-Public Use
  Company Number: None

PATIENT
  Age: 47 Year
  Sex: Female
  Weight: 70.3075 kg

DRUGS (1)
  1. ZICAM ZINCOM GLUCONICUM 2X ZICAM LLC [Suspect]
     Indication: NASOPHARYNGITIS
     Dosage: NASAL
     Dates: start: 20060315, end: 20060317

REACTIONS (3)
  - HYPOSMIA [None]
  - ILL-DEFINED DISORDER [None]
  - RHINALGIA [None]
